FAERS Safety Report 10271110 (Version 1)
Quarter: 2014Q3

REPORT INFORMATION
  Report Type: Spontaneous
  Country: ES (occurrence: ES)
  Receive Date: 20140701
  Receipt Date: 20140701
  Transmission Date: 20150326
  Serious: Yes (Other)
  Sender: FDA-Public Use
  Company Number: ES-BAYER-2014-093777

PATIENT
  Age: 67 Year
  Sex: Female
  Weight: 80 kg

DRUGS (1)
  1. ACTIRA [Suspect]
     Active Substance: MOXIFLOXACIN HYDROCHLORIDE
     Indication: BRONCHITIS
     Dosage: 400 MG, UNK
     Route: 048
     Dates: start: 20140423, end: 20140423

REACTIONS (3)
  - Urticaria [Unknown]
  - Dyspnoea [Unknown]
  - Tachypnoea [Unknown]

NARRATIVE: CASE EVENT DATE: 20140423
